FAERS Safety Report 16529397 (Version 2)
Quarter: 2019Q4

REPORT INFORMATION
  Report Type: Spontaneous
  Country: US (occurrence: US)
  Receive Date: 20190704
  Receipt Date: 20191002
  Transmission Date: 20200122
  Serious: No
  Sender: FDA-Public Use
  Company Number: US-GW PHARMA-201906USGW2129

PATIENT

DRUGS (3)
  1. KEPPRA [Concomitant]
     Active Substance: LEVETIRACETAM
     Indication: PRODUCT USED FOR UNKNOWN INDICATION
     Dosage: 500 MILLIGRAM, BID
     Route: 065
  2. EPIDIOLEX [Suspect]
     Active Substance: CANNABIDIOL
     Indication: LENNOX-GASTAUT SYNDROME
     Dosage: 14.70 MG/KG, 100 MILLIGRAM, BID
     Route: 048
     Dates: start: 20190208, end: 2019
  3. ONFI [Concomitant]
     Active Substance: CLOBAZAM
     Indication: PRODUCT USED FOR UNKNOWN INDICATION
     Dosage: 12.5 MILLIGRAM, BID
     Route: 065

REACTIONS (2)
  - Seizure [Unknown]
  - Weight increased [Unknown]

NARRATIVE: CASE EVENT DATE: 201902
